FAERS Safety Report 4666462-X (Version None)
Quarter: 2005Q2

REPORT INFORMATION
  Report Type: 
  Country: None (occurrence: None)
  Receive Date: 20050518
  Receipt Date: 20050506
  Transmission Date: 20051028
  Serious: Yes (Hospitalization, Other)
  Sender: FDA-Public Use
  Company Number: 2005059691

PATIENT
  Age: 44 Year
  Sex: Female
  Weight: 53.5244 kg

DRUGS (4)
  1. CELEBREX [Suspect]
     Indication: PAIN
     Dosage: 200 MG (100 MG, PRN), ORAL
     Route: 048
     Dates: start: 20041221, end: 20050329
  2. RISPERDAL [Suspect]
     Indication: ILL-DEFINED DISORDER
     Dates: end: 20050418
  3. DIPHENHYDRAMINE HCL [Concomitant]
  4. PARACETAMOL (PARACETAMOL) [Concomitant]

REACTIONS (5)
  - BUTTOCK PAIN [None]
  - DELUSION [None]
  - LEUKOPENIA [None]
  - PAIN IN EXTREMITY [None]
  - PARANOIA [None]
